FAERS Safety Report 25406816 (Version 1)
Quarter: 2025Q2

REPORT INFORMATION
  Report Type: Report from Study
  Country: US (occurrence: US)
  Receive Date: 20250606
  Receipt Date: 20250606
  Transmission Date: 20250716
  Serious: Yes (Other)
  Sender: SERVIER
  Company Number: US-SERVIER-S25007716

PATIENT

DRUGS (1)
  1. TIBSOVO [Suspect]
     Active Substance: IVOSIDENIB
     Indication: Brain neoplasm malignant
     Dosage: 500 MG, QD
     Route: 048
     Dates: start: 202409

REACTIONS (2)
  - Meniscus injury [Unknown]
  - Synovial cyst [Unknown]

NARRATIVE: CASE EVENT DATE: 20250501
